FAERS Safety Report 15125823 (Version 1)
Quarter: 2018Q3

REPORT INFORMATION
  Report Type: Spontaneous
  Country: US (occurrence: US)
  Receive Date: 20180710
  Receipt Date: 20180710
  Transmission Date: 20181010
  Serious: No
  Sender: FDA-Public Use
  Company Number: US-UPSHER-SMITH LABORATORIES, LLC-2017USL00132

PATIENT
  Age: 54 Year
  Sex: Male

DRUGS (1)
  1. TESTOSTERONE. [Suspect]
     Active Substance: TESTOSTERONE

REACTIONS (5)
  - Product storage error [Unknown]
  - Mood altered [Unknown]
  - Drug ineffective [Unknown]
  - Malaise [Unknown]
  - Unevaluable event [Unknown]
